FAERS Safety Report 7407823-5 (Version None)
Quarter: 2011Q2

REPORT INFORMATION
  Report Type: 
  Country: None (occurrence: None)
  Receive Date: 20110412
  Receipt Date: 20110405
  Transmission Date: 20111010
  Serious: Yes (Other)
  Sender: FDA-Public Use
  Company Number: US-AMGEN-USASP2011018218

PATIENT
  Age: 70 Year
  Sex: Female

DRUGS (6)
  1. IRON [Concomitant]
  2. TOBRADEX [Concomitant]
  3. LIPITOR [Concomitant]
  4. LASIX [Concomitant]
  5. NEUPOGEN [Suspect]
     Indication: NEUTROPENIA
     Dates: start: 20110104, end: 20110302
  6. PRADAXA                            /01633202/ [Concomitant]

REACTIONS (4)
  - WHITE BLOOD CELL COUNT INCREASED [None]
  - ARTHROPOD BITE [None]
  - ERYTHEMA NODOSUM [None]
  - ATRIAL FIBRILLATION [None]
